FAERS Safety Report 4570078-3 (Version None)
Quarter: 2005Q1

REPORT INFORMATION
  Report Type: 
  Country: None (occurrence: None)
  Receive Date: 20050131
  Receipt Date: 20050119
  Transmission Date: 20050727
  Serious: Yes (Other)
  Sender: FDA-Public Use
  Company Number: 05-000060

PATIENT
  Age: 53 Year
  Sex: Female
  Weight: 68 kg

DRUGS (2)
  1. ESTRACE [Suspect]
     Indication: VULVOVAGINAL DRYNESS
     Dosage: VAGINAL
     Route: 067
     Dates: start: 20040901
  2. TRAZODONE (TRAZODONE) [Concomitant]

REACTIONS (3)
  - CARBOHYDRATE ANTIGEN 125 INCREASED [None]
  - OVARIAN CANCER [None]
  - RECURRENT CANCER [None]
